FAERS Safety Report 9039439 (Version 1)
Quarter: 2013Q1

REPORT INFORMATION
  Report Type: Report from Study
  Country: US (occurrence: US)
  Receive Date: 20130129
  Receipt Date: 20130129
  Transmission Date: 20140127
  Serious: No
  Sender: FDA-Public Use
  Company Number: US-ABBOTT-12P-163-0933247-00

PATIENT
  Age: 56 Year
  Sex: Female

DRUGS (10)
  1. HUMIRA 40 MG/ 0.8 ML PRE-FILLED SYRINGE [Suspect]
     Indication: ANKYLOSING SPONDYLITIS
     Dates: start: 20120506
  2. HUMIRA 40 MG/0.8 ML PEN [Suspect]
     Indication: ANKYLOSING SPONDYLITIS
     Dates: start: 20120408, end: 20120506
  3. IMURAN [Concomitant]
     Indication: ANKYLOSING SPONDYLITIS
     Dosage: 125MG DAILY
  4. TRAZODONE [Concomitant]
     Indication: INSOMNIA
     Dosage: 250MG DAILY AT BEDTIME
  5. KLONOPIN [Concomitant]
     Indication: MUSCLE RELAXANT THERAPY
  6. KLONOPIN [Concomitant]
  7. KLONOPIN [Concomitant]
  8. KLONOPIN [Concomitant]
  9. TYLENOL [Concomitant]
     Indication: PAIN
  10. GENERIC THYROID [Concomitant]
     Indication: HYPOTHYROIDISM

REACTIONS (1)
  - Injection site pain [Recovered/Resolved]
